FAERS Safety Report 19499252 (Version 3)
Quarter: 2022Q2

REPORT INFORMATION
  Report Type: Report from Study
  Country: DE (occurrence: DE)
  Receive Date: 20210706
  Receipt Date: 20220503
  Transmission Date: 20220721
  Serious: Yes (Hospitalization, Other)
  Sender: FDA-Public Use
  Company Number: DE-TAKEDA-DE201801245

PATIENT
  Age: 60 Year
  Sex: Female
  Weight: 46 kg

DRUGS (20)
  1. TEDUGLUTIDE [Suspect]
     Active Substance: TEDUGLUTIDE
     Indication: Short-bowel syndrome
     Dosage: 0.03 MILLIGRAM/KILOGRAM, QD
     Route: 042
     Dates: start: 20170613, end: 20180509
  2. TEDUGLUTIDE [Suspect]
     Active Substance: TEDUGLUTIDE
     Indication: Short-bowel syndrome
     Dosage: 0.03 MILLIGRAM/KILOGRAM, QD
     Route: 042
     Dates: start: 20170613, end: 20180509
  3. TEDUGLUTIDE [Suspect]
     Active Substance: TEDUGLUTIDE
     Indication: Short-bowel syndrome
     Dosage: 0.03 MILLIGRAM/KILOGRAM, QD
     Route: 042
     Dates: start: 20170613, end: 20180509
  4. TEDUGLUTIDE [Suspect]
     Active Substance: TEDUGLUTIDE
     Indication: Short-bowel syndrome
     Dosage: 0.03 MILLIGRAM/KILOGRAM, QD
     Route: 042
     Dates: start: 20170613, end: 20180509
  5. TEDUGLUTIDE [Suspect]
     Active Substance: TEDUGLUTIDE
     Dosage: 2.2 MILLIGRAM, QD
     Route: 042
     Dates: start: 20180510, end: 201906
  6. TEDUGLUTIDE [Suspect]
     Active Substance: TEDUGLUTIDE
     Dosage: 2.2 MILLIGRAM, QD
     Route: 042
     Dates: start: 20180510, end: 201906
  7. TEDUGLUTIDE [Suspect]
     Active Substance: TEDUGLUTIDE
     Dosage: 2.2 MILLIGRAM, QD
     Route: 042
     Dates: start: 20180510, end: 201906
  8. TEDUGLUTIDE [Suspect]
     Active Substance: TEDUGLUTIDE
     Dosage: 2.2 MILLIGRAM, QD
     Route: 042
     Dates: start: 20180510, end: 201906
  9. TEDUGLUTIDE [Suspect]
     Active Substance: TEDUGLUTIDE
     Dosage: 1.100 MILLIGRAM, QD
     Route: 042
     Dates: start: 20170613, end: 20180509
  10. TEDUGLUTIDE [Suspect]
     Active Substance: TEDUGLUTIDE
     Dosage: 1.100 MILLIGRAM, QD
     Route: 042
     Dates: start: 20170613, end: 20180509
  11. TEDUGLUTIDE [Suspect]
     Active Substance: TEDUGLUTIDE
     Dosage: 1.100 MILLIGRAM, QD
     Route: 042
     Dates: start: 20170613, end: 20180509
  12. TEDUGLUTIDE [Suspect]
     Active Substance: TEDUGLUTIDE
     Dosage: 1.100 MILLIGRAM, QD
     Route: 042
     Dates: start: 20170613, end: 20180509
  13. NADROPARIN [Concomitant]
     Active Substance: NADROPARIN
     Indication: Thrombosis prophylaxis
     Dosage: UNK
     Route: 065
  14. PANTOPRAZOLE [Concomitant]
     Active Substance: PANTOPRAZOLE
     Indication: Antacid therapy
     Dosage: UNK
     Route: 065
  15. BUPRENORPHINE [Concomitant]
     Active Substance: BUPRENORPHINE
     Indication: Pain
     Dosage: UNK
     Route: 065
  16. IMIPRAMINE [Concomitant]
     Active Substance: IMIPRAMINE
     Indication: Depression
     Dosage: UNK
     Route: 065
  17. CALCIUM [Concomitant]
     Active Substance: CALCIUM
     Indication: Calcium deficiency
     Dosage: 500 MILLIGRAM, QD
     Route: 048
     Dates: start: 201911
  18. COLECALCIFEROL MEDA [Concomitant]
     Indication: Vitamin D deficiency
     Dosage: 1000 INTERNATIONAL UNIT, QD
     Route: 048
     Dates: start: 201904
  19. COLECALCIFEROL MEDA [Concomitant]
     Dosage: 1000 INTERNATIONAL UNIT, QD
     Route: 048
     Dates: start: 201906
  20. MIRTAZAPINE [Concomitant]
     Active Substance: MIRTAZAPINE
     Indication: Sleep disorder
     Dosage: 7.50 MILLIGRAM, QD
     Route: 048
     Dates: start: 201810

REACTIONS (2)
  - Device related infection [Recovered/Resolved with Sequelae]
  - Post procedural complication [Recovered/Resolved]

NARRATIVE: CASE EVENT DATE: 20171001
